FAERS Safety Report 8197915-8 (Version None)
Quarter: 2012Q1

REPORT INFORMATION
  Report Type: 
  Country: None (occurrence: None)
  Receive Date: 20120309
  Receipt Date: 20120301
  Transmission Date: 20120608
  Serious: Yes (Other)
  Sender: FDA-Public Use
  Company Number: IL-BAXTER-2012BH006842

PATIENT
  Sex: Female

DRUGS (2)
  1. AZATHIOPRINE [Suspect]
     Indication: CONNECTIVE TISSUE DISORDER
     Route: 065
  2. CYCLOPHOSPHAMIDE [Suspect]
     Indication: CONNECTIVE TISSUE DISORDER
     Route: 042

REACTIONS (1)
  - MATERNAL EXPOSURE DURING PREGNANCY [None]
